FAERS Safety Report 23406782 (Version 3)
Quarter: 2024Q4

REPORT INFORMATION
  Report Type: Spontaneous
  Country: US (occurrence: US)
  Receive Date: 20240116
  Receipt Date: 20241224
  Transmission Date: 20250115
  Serious: No
  Sender: CSL BEHRING
  Company Number: US-BEH-2024167357

PATIENT
  Sex: Female

DRUGS (24)
  1. HIZENTRA [Suspect]
     Active Substance: HUMAN IMMUNOGLOBULIN G
     Indication: Bronchiectasis
     Dosage: 16 GRAM, QW
     Route: 058
     Dates: start: 20190521
  2. HIZENTRA [Suspect]
     Active Substance: HUMAN IMMUNOGLOBULIN G
     Dosage: 16 GRAM, QW(PRODUCT STRENGTH 2 GM 10 ML)
     Route: 058
  3. IRON [Suspect]
     Active Substance: IRON
     Indication: Product used for unknown indication
     Route: 065
  4. OMEPRAZOLE [Concomitant]
     Active Substance: OMEPRAZOLE
  5. TRAMADOL HCL [Concomitant]
     Active Substance: TRAMADOL HYDROCHLORIDE
  6. LINEZOLID [Concomitant]
     Active Substance: LINEZOLID
  7. BACTRIM [Concomitant]
     Active Substance: SULFAMETHOXAZOLE\TRIMETHOPRIM
  8. HYOSCYAMINE SULFATE [Concomitant]
     Active Substance: HYOSCYAMINE SULFATE
  9. AUGMENTIN [Concomitant]
     Active Substance: AMOXICILLIN\CLAVULANATE POTASSIUM
  10. LACTOBACILLUS ACIDOPHILUS [Concomitant]
     Active Substance: LACTOBACILLUS ACIDOPHILUS
  11. ALBUTEROL SULFATE [Concomitant]
     Active Substance: ALBUTEROL SULFATE
  12. IPRATROPIUM BROMIDE [Concomitant]
     Active Substance: IPRATROPIUM BROMIDE
  13. LASIX [Concomitant]
     Active Substance: FUROSEMIDE
  14. METFORMIN HYDROCHLORIDE [Concomitant]
     Active Substance: METFORMIN HYDROCHLORIDE
  15. METOPROLOL SUCCINATE [Concomitant]
     Active Substance: METOPROLOL SUCCINATE
  16. POTASSIUM [Concomitant]
     Active Substance: POTASSIUM
  17. PREDNISONE [Concomitant]
     Active Substance: PREDNISONE
  18. QVAR REDIHALER [Concomitant]
     Active Substance: BECLOMETHASONE DIPROPIONATE
  19. SINGULAIR [Concomitant]
     Active Substance: MONTELUKAST SODIUM
  20. SPIRIVA [Concomitant]
     Active Substance: TIOTROPIUM BROMIDE MONOHYDRATE
  21. VITAMIN D NOS [Concomitant]
     Active Substance: CHOLECALCIFEROL\ERGOCALCIFEROL
  22. XANAX [Concomitant]
     Active Substance: ALPRAZOLAM
  23. FERROUS SULFATE [Concomitant]
     Active Substance: FERROUS SULFATE
  24. IRON [Concomitant]
     Active Substance: IRON

REACTIONS (3)
  - Infusion site nodule [Unknown]
  - Product dose omission in error [Unknown]
  - Skin exfoliation [Not Recovered/Not Resolved]
